FAERS Safety Report 5300927-2 (Version None)
Quarter: 2007Q2

REPORT INFORMATION
  Report Type: 
  Country: None (occurrence: None)
  Receive Date: 20070418
  Receipt Date: 20070411
  Transmission Date: 20071010
  Serious: Yes (Life-Threatening)
  Sender: FDA-Public Use
  Company Number: IT-ROCHE-492710

PATIENT
  Age: 39 Year
  Sex: Female

DRUGS (1)
  1. ROCEPHIN [Suspect]
     Indication: DRUG USE FOR UNKNOWN INDICATION
     Dosage: FORM REPORTED AS UNK GR VIAL.
     Route: 030
     Dates: start: 20070404, end: 20070404

REACTIONS (3)
  - ANAPHYLACTIC SHOCK [None]
  - RESPIRATORY FAILURE [None]
  - URTICARIA [None]
